FAERS Safety Report 9681886 (Version 1)
Quarter: 2013Q4

REPORT INFORMATION
  Report Type: Spontaneous
  Country: FR (occurrence: FR)
  Receive Date: 20131111
  Receipt Date: 20131111
  Transmission Date: 20140711
  Serious: Yes (Other)
  Sender: FDA-Public Use
  Company Number: FR-GILEAD-2013-0086869

PATIENT
  Age: 21 Year
  Sex: Female

DRUGS (4)
  1. ATRIPLA [Suspect]
     Indication: HIV INFECTION
     Dosage: UNK
     Dates: start: 200605, end: 200701
  2. EMTRICITABINE/TENOFOVIR DF [Suspect]
     Indication: HIV INFECTION
     Dosage: UNK
     Dates: start: 200701
  3. LOPINAVIR [Concomitant]
     Indication: HIV INFECTION
     Dosage: UNK
     Dates: start: 200701
  4. CAELYX [Concomitant]
     Dosage: UNK
     Dates: start: 2006

REACTIONS (4)
  - Kaposi^s sarcoma [Unknown]
  - CD4 lymphocytes decreased [Unknown]
  - Viral load increased [Unknown]
  - Drug ineffective [Unknown]
